FAERS Safety Report 7378407-2 (Version None)
Quarter: 2011Q1

REPORT INFORMATION
  Report Type: 
  Country: None (occurrence: None)
  Receive Date: 20110323
  Receipt Date: 20110323
  Transmission Date: 20110831
  Serious: Yes (Other)
  Sender: FDA-Public Use
  Company Number: None

PATIENT
  Sex: Female

DRUGS (2)
  1. FENTANYL [Suspect]
     Indication: PAIN
     Dosage: 25 MCG PATCH
     Dates: start: 20110319, end: 20110320
  2. FENTANYL [Suspect]
     Indication: SPONDYLOLISTHESIS
     Dosage: 25 MCG PATCH
     Dates: start: 20110319, end: 20110320

REACTIONS (3)
  - HEADACHE [None]
  - VOMITING [None]
  - NAUSEA [None]
